FAERS Safety Report 12528261 (Version 1)
Quarter: 2016Q3

REPORT INFORMATION
  Report Type: Spontaneous
  Country: GB (occurrence: GB)
  Receive Date: 20160705
  Receipt Date: 20160705
  Transmission Date: 20161109
  Serious: Yes (Death, Other)
  Sender: FDA-Public Use
  Company Number: GB-PFIZER INC-2016322249

PATIENT
  Age: 30 Year
  Sex: Female

DRUGS (1)
  1. BUPIVACAINE. [Suspect]
     Active Substance: BUPIVACAINE
     Dosage: UNK
     Route: 042

REACTIONS (4)
  - Postpartum haemorrhage [Fatal]
  - Drug administration error [Fatal]
  - Seizure [Unknown]
  - Wrong drug administered [Fatal]
